FAERS Safety Report 25873125 (Version 1)
Quarter: 2025Q4

REPORT INFORMATION
  Report Type: Report from Study
  Country: EU (occurrence: EU)
  Receive Date: 20251002
  Receipt Date: 20251002
  Transmission Date: 20260118
  Serious: Yes (Other)
  Sender: PFIZER
  Company Number: EU-ABBVIE-6465862

PATIENT
  Age: 33 Year
  Sex: Female

DRUGS (2)
  1. ADALIMUMAB [Suspect]
     Active Substance: ADALIMUMAB
     Indication: Product used for unknown indication
     Dosage: UNK
     Route: 058
  2. RINVOQ [Suspect]
     Active Substance: UPADACITINIB
     Indication: Product used for unknown indication
     Dosage: 45 MG
     Route: 048

REACTIONS (12)
  - Portosplenomesenteric venous thrombosis [Unknown]
  - Thrombosis [Unknown]
  - Uveitis [Unknown]
  - Enterocolitis [Unknown]
  - Fistula of small intestine [Unknown]
  - Perineal fistula [Unknown]
  - Spondylitis [Unknown]
  - Psoriasis [Unknown]
  - Asthma [Unknown]
  - Hypersensitivity [Unknown]
  - Vaginal stricture [Unknown]
  - Enteritis [Unknown]

NARRATIVE: CASE EVENT DATE: 20240101
